FAERS Safety Report 7353642-8 (Version None)
Quarter: 2011Q1

REPORT INFORMATION
  Report Type: 
  Country: None (occurrence: None)
  Receive Date: 20110303
  Receipt Date: 20100614
  Transmission Date: 20110831
  Serious: Yes (Hospitalization)
  Sender: FDA-Public Use
  Company Number: US-004586

PATIENT
  Age: 54 Year
  Sex: Female
  Weight: 90 kg

DRUGS (4)
  1. ISOVUE-300 [Suspect]
     Indication: DYSPNOEA
     Dosage: 100ML ONCE INTRAVENOUS (NOT OTHERWISE SPECIFIED)
     Route: 042
     Dates: start: 20100523, end: 20100523
  2. ISOVUE-300 [Suspect]
     Indication: OEDEMA PERIPHERAL
     Dosage: 100ML ONCE INTRAVENOUS (NOT OTHERWISE SPECIFIED)
     Route: 042
     Dates: start: 20100523, end: 20100523
  3. ISOVUE-300 [Suspect]
     Indication: COMPUTERISED TOMOGRAM
     Dosage: 100ML ONCE INTRAVENOUS (NOT OTHERWISE SPECIFIED)
     Route: 042
     Dates: start: 20100523, end: 20100523
  4. ISOVUE-300 [Suspect]
     Indication: WHEEZING
     Dosage: 100ML ONCE INTRAVENOUS (NOT OTHERWISE SPECIFIED)
     Route: 042
     Dates: start: 20100523, end: 20100523

REACTIONS (5)
  - CONTRAST MEDIA ALLERGY [None]
  - CONDITION AGGRAVATED [None]
  - CONCOMITANT DISEASE AGGRAVATED [None]
  - CHRONIC OBSTRUCTIVE PULMONARY DISEASE [None]
  - PAIN IN EXTREMITY [None]
